FAERS Safety Report 15436701 (Version 1)
Quarter: 2018Q3

REPORT INFORMATION
  Report Type: Spontaneous
  Country: US (occurrence: US)
  Receive Date: 20180927
  Receipt Date: 20180927
  Transmission Date: 20181010
  Serious: Yes (Other)
  Sender: FDA-Public Use
  Company Number: US-ENDO PHARMACEUTICALS INC-2018-041343

PATIENT
  Age: 66 Year
  Sex: Male
  Weight: 104.76 kg

DRUGS (1)
  1. XIAFLEX [Suspect]
     Active Substance: COLLAGENASE CLOSTRIDIUM HISTOLYTICUM
     Indication: DUPUYTREN^S CONTRACTURE
     Dosage: UNK UNKNOWN, UNKNOWN
     Route: 026
     Dates: start: 20180828

REACTIONS (4)
  - Product quality issue [Unknown]
  - Erythema [Unknown]
  - Infection [Recovered/Resolved]
  - Laceration [Unknown]

NARRATIVE: CASE EVENT DATE: 20180904
